FAERS Safety Report 15017074 (Version 1)
Quarter: 2018Q2

REPORT INFORMATION
  Report Type: Spontaneous
  Country: US (occurrence: US)
  Receive Date: 20180615
  Receipt Date: 20180615
  Transmission Date: 20180711
  Serious: Yes (Other)
  Sender: FDA-Public Use
  Company Number: US-TEVA-2018-US-907577

PATIENT
  Age: 60 Year
  Sex: Female
  Weight: 90.8 kg

DRUGS (1)
  1. MICONAZOLE. [Suspect]
     Active Substance: MICONAZOLE
     Indication: VULVOVAGINAL MYCOTIC INFECTION
     Dosage: EQ 3 DAY
     Route: 065
     Dates: start: 20180604, end: 20180605

REACTIONS (1)
  - Vaginal erosion [Recovered/Resolved]

NARRATIVE: CASE EVENT DATE: 20180606
